FAERS Safety Report 18122794 (Version 1)
Quarter: 2020Q3

REPORT INFORMATION
  Report Type: Spontaneous
  Country: US (occurrence: US)
  Receive Date: 20200806
  Receipt Date: 20200806
  Transmission Date: 20201103
  Serious: Yes (Hospitalization)
  Sender: FDA-Public Use
  Company Number: None

PATIENT
  Age: 85 Year
  Sex: Female

DRUGS (2)
  1. AFINITOR [Suspect]
     Active Substance: EVEROLIMUS
     Indication: BREAST CANCER
     Route: 048
     Dates: start: 20200521
  2. CAPECITABINE. [Concomitant]
     Active Substance: CAPECITABINE
     Dates: end: 20200324

REACTIONS (2)
  - Fall [None]
  - Product dose omission issue [None]

NARRATIVE: CASE EVENT DATE: 20200713
